FAERS Safety Report 8367101-7 (Version None)
Quarter: 2012Q2

REPORT INFORMATION
  Report Type: 
  Country: None (occurrence: None)
  Receive Date: 20120517
  Receipt Date: 20120510
  Transmission Date: 20120825
  Serious: No
  Sender: FDA-Public Use
  Company Number: US-ASTRAZENECA-2012SE30456

PATIENT
  Age: 35 Year
  Sex: Male

DRUGS (1)
  1. SEROQUEL XR [Suspect]
     Route: 048

REACTIONS (4)
  - PERSONALITY CHANGE [None]
  - INTENTIONAL DRUG MISUSE [None]
  - ANGER [None]
  - AGITATION [None]
